FAERS Safety Report 12519406 (Version 1)
Quarter: 2016Q2

REPORT INFORMATION
  Report Type: Spontaneous
  Country: CH (occurrence: CH)
  Receive Date: 20160630
  Receipt Date: 20160630
  Transmission Date: 20160815
  Serious: Yes (Other)
  Sender: FDA-Public Use
  Company Number: CH-BAYER-2016-120413

PATIENT
  Age: 74 Year
  Sex: Female

DRUGS (2)
  1. GADOBUTROL [Suspect]
     Active Substance: GADOBUTROL
     Indication: SKIN TEST
  2. GADOBENIC ACID [Suspect]
     Active Substance: GADOBENIC ACID
     Indication: NUCLEAR MAGNETIC RESONANCE IMAGING

REACTIONS (7)
  - Hypersensitivity [None]
  - Drug cross-reactivity [None]
  - Dyspnoea [None]
  - Swollen tongue [None]
  - Erythema [None]
  - Sensory disturbance [None]
  - Dysphagia [None]
